FAERS Safety Report 12503639 (Version 3)
Quarter: 2016Q3

REPORT INFORMATION
  Report Type: Spontaneous
  Country: US (occurrence: US)
  Receive Date: 20160628
  Receipt Date: 20160729
  Transmission Date: 20161109
  Serious: Yes (Hospitalization, Other)
  Sender: FDA-Public Use
  Company Number: US-SHIRE-US201607329

PATIENT
  Age: 39 Year
  Sex: Female

DRUGS (1)
  1. FIRAZYR [Suspect]
     Active Substance: ICATIBANT ACETATE
     Indication: HEREDITARY ANGIOEDEMA
     Dosage: 30 MG, AS REQ^D
     Route: 058
     Dates: start: 20151012

REACTIONS (6)
  - Pulmonary embolism [Unknown]
  - Pharyngeal oedema [Not Recovered/Not Resolved]
  - Chest pain [Unknown]
  - Vein disorder [Unknown]
  - Hypertension [Unknown]
  - Jugular vein thrombosis [Unknown]

NARRATIVE: CASE EVENT DATE: 2016
